FAERS Safety Report 7751163-1 (Version None)
Quarter: 2011Q3

REPORT INFORMATION
  Report Type: 
  Country: None (occurrence: None)
  Receive Date: 20110912
  Receipt Date: 20110826
  Transmission Date: 20111222
  Serious: Yes (Other)
  Sender: FDA-Public Use
  Company Number: 2011MA012706

PATIENT
  Age: 71 Year
  Sex: Female
  Weight: 71.3055 kg

DRUGS (51)
  1. METOCLOPRAMIDE [Suspect]
     Indication: HIATUS HERNIA
     Dosage: 20 MG;BID;PO
     Route: 048
     Dates: start: 20000721, end: 20090420
  2. METOCLOPRAMIDE [Suspect]
     Indication: GASTROOESOPHAGEAL REFLUX DISEASE
     Dosage: 20 MG;BID;PO
     Route: 048
     Dates: start: 20000721, end: 20090420
  3. PREVACID [Concomitant]
  4. ARIMIDEX [Concomitant]
  5. VICODIN [Concomitant]
  6. OXYCODONE/ACETAMINOPHEN [Concomitant]
  7. FISH OIL [Concomitant]
  8. VALTREX [Concomitant]
  9. CRESTOR [Concomitant]
  10. CENTRUM SILVER [Concomitant]
  11. PREDNISONE [Concomitant]
  12. PRAVACHOL [Concomitant]
  13. MAGIC MOUTHWASH [Concomitant]
  14. CARBIDOPA LEVIDOPA [Concomitant]
  15. ALLEGRA [Concomitant]
  16. PEPCID [Concomitant]
  17. PLAQUENIL [Concomitant]
  18. OXYCONTIN [Concomitant]
  19. LEVAGUIN [Concomitant]
  20. CYCLOPHOSPHAMIDE [Concomitant]
  21. CALTRATE +D [Concomitant]
  22. PRILOSEC [Concomitant]
  23. GLUCOSAMINE CHONDROITIN [Concomitant]
  24. METAMUCIL-2 [Concomitant]
  25. ACTONEL [Concomitant]
  26. XANAX [Concomitant]
  27. ZANTAC [Concomitant]
  28. CELEXA [Concomitant]
  29. VICODIN [Concomitant]
  30. LIMBREL [Concomitant]
  31. FOLTX [Concomitant]
  32. PERCOCET [Concomitant]
  33. MYCOSTATIN [Concomitant]
  34. NEURONTIN [Concomitant]
  35. SINEMET [Concomitant]
  36. EVISTA [Concomitant]
  37. ADIPEX [Concomitant]
  38. FLUOXETINE [Concomitant]
  39. CIPROFLOXACIN [Concomitant]
  40. KLONOPIN [Concomitant]
  41. LOVAZA [Concomitant]
  42. TRAZODONE HYDROCHLORIDE [Concomitant]
  43. ACIPHEX [Concomitant]
  44. ADVIL LIQUI-GELS [Concomitant]
  45. STEROID [Concomitant]
  46. TRAMADOL HCL [Concomitant]
  47. ZETIA [Concomitant]
  48. MACROBID [Concomitant]
  49. NYSTATIN [Concomitant]
  50. LORATADINE [Concomitant]
  51. VITAMIN B-12 [Concomitant]

REACTIONS (55)
  - CEREBRAL SMALL VESSEL ISCHAEMIC DISEASE [None]
  - ATAXIA [None]
  - TRICUSPID VALVE INCOMPETENCE [None]
  - PARKINSON'S DISEASE [None]
  - TARDIVE DYSKINESIA [None]
  - EMOTIONAL DISORDER [None]
  - RHINITIS ALLERGIC [None]
  - INGROWING NAIL [None]
  - INTERVERTEBRAL DISC DEGENERATION [None]
  - LACUNAR INFARCTION [None]
  - PARKINSONISM [None]
  - CHILLS [None]
  - OSTEOARTHRITIS [None]
  - MENISCUS LESION [None]
  - HAEMATURIA [None]
  - CONSTIPATION [None]
  - MOOD SWINGS [None]
  - OSTEOPOROSIS [None]
  - SYNOVIAL CYST [None]
  - JOINT EFFUSION [None]
  - BLOOD TRIGLYCERIDES INCREASED [None]
  - BREAST CANCER [None]
  - DIVERTICULUM INTESTINAL [None]
  - JOINT STIFFNESS [None]
  - BACK PAIN [None]
  - MOBILITY DECREASED [None]
  - OEDEMA PERIPHERAL [None]
  - DEPRESSION [None]
  - TONGUE DISORDER [None]
  - DRUG INTOLERANCE [None]
  - DYSKINESIA [None]
  - MUSCLE SPASMS [None]
  - DYSPEPSIA [None]
  - NOCTURIA [None]
  - BLOOD CHOLESTEROL INCREASED [None]
  - HIP ARTHROPLASTY [None]
  - INSOMNIA [None]
  - OBESITY [None]
  - ARTHRALGIA [None]
  - SEASONAL ALLERGY [None]
  - BALANCE DISORDER [None]
  - GLOSSODYNIA [None]
  - FATIGUE [None]
  - COLONIC POLYP [None]
  - ANXIETY [None]
  - FALL [None]
  - PERSONALITY CHANGE [None]
  - BURNING MOUTH SYNDROME [None]
  - ORAL HERPES [None]
  - HAEMORRHOIDS [None]
  - NEURALGIA [None]
  - HYPERLIPIDAEMIA [None]
  - OROPHARYNGEAL PAIN [None]
  - ANTINUCLEAR ANTIBODY POSITIVE [None]
  - ANAL FISSURE [None]
